FAERS Safety Report 7704349-6 (Version None)
Quarter: 2011Q3

REPORT INFORMATION
  Report Type: 
  Country: None (occurrence: None)
  Receive Date: 20110823
  Receipt Date: 20110819
  Transmission Date: 20111222
  Serious: Yes (Death)
  Sender: FDA-Public Use
  Company Number: MX-SANOFI-AVENTIS-2011SA053252

PATIENT
  Age: 81 Year
  Sex: Female

DRUGS (2)
  1. LANTUS [Suspect]
     Indication: TYPE 2 DIABETES MELLITUS
     Dosage: 30 IU A DAY (20 IU IN THE AM AND 10 IU IN THE PM)
     Route: 058
     Dates: start: 20050101, end: 20100823
  2. INSULIN [Concomitant]
     Indication: TYPE 2 DIABETES MELLITUS
     Dates: end: 20100823

REACTIONS (3)
  - RENAL DISORDER [None]
  - HYPERGLYCAEMIA [None]
  - LIVER DISORDER [None]
